FAERS Safety Report 5224146-3 (Version None)
Quarter: 2007Q1

REPORT INFORMATION
  Report Type: 
  Country: None (occurrence: None)
  Receive Date: 20070130
  Receipt Date: 20070125
  Transmission Date: 20070707
  Serious: Yes (Other)
  Sender: FDA-Public Use
  Company Number: GB-SANOFI-SYNTHELABO-A01200700857

PATIENT
  Age: 53 Year
  Sex: Male
  Weight: 78.6 kg

DRUGS (2)
  1. LEUCOVORIN CALCIUM [Suspect]
     Route: 042
     Dates: start: 20070112, end: 20070112
  2. ELOXATIN [Suspect]
     Indication: RECTAL CANCER METASTATIC
     Route: 042
     Dates: start: 20070112, end: 20070112

REACTIONS (4)
  - ERYTHEMA [None]
  - PARAESTHESIA [None]
  - THROAT TIGHTNESS [None]
  - VOMITING [None]
